FAERS Safety Report 7680025-3 (Version None)
Quarter: 2011Q3

REPORT INFORMATION
  Report Type: 
  Country: None (occurrence: None)
  Receive Date: 20110805
  Receipt Date: 20110721
  Transmission Date: 20111222
  Serious: Yes (Hospitalization, Disabling, Other)
  Sender: FDA-Public Use
  Company Number: 2010SP028233

PATIENT
  Age: 45 Year
  Sex: Female
  Weight: 57.6068 kg

DRUGS (8)
  1. RHINOCORT [Concomitant]
  2. PRENATAL VITAMINS [Concomitant]
  3. NUVARING [Suspect]
     Indication: MENSTRUAL CYCLE MANAGEMENT
     Dosage: VAG
     Route: 067
     Dates: start: 20061201, end: 20080503
  4. NUVARING [Suspect]
     Indication: GASTRIC BYPASS
     Dosage: VAG
     Route: 067
     Dates: start: 20061201, end: 20080503
  5. NORVASC [Suspect]
     Indication: HYPERTENSION
     Dosage: 10 MG;QD;PO
     Route: 048
     Dates: start: 20080511, end: 20080901
  6. ALLEGRA [Concomitant]
  7. CYMBALTA [Suspect]
     Indication: ANXIETY
     Dosage: 60 MG;BID;PO, 60 MG;QD;PO
     Route: 048
     Dates: start: 20080701
  8. CYMBALTA [Suspect]
     Indication: MAJOR DEPRESSION
     Dosage: 60 MG;BID;PO, 60 MG;QD;PO
     Route: 048
     Dates: start: 20080701

REACTIONS (48)
  - ANEURYSM [None]
  - NAUSEA [None]
  - ANAEMIA [None]
  - BALANCE DISORDER [None]
  - PRESYNCOPE [None]
  - HYPERTENSION [None]
  - HUMERUS FRACTURE [None]
  - HAEMANGIOMA OF LIVER [None]
  - ABDOMINAL PAIN [None]
  - HERNIA REPAIR [None]
  - CONVULSION [None]
  - DIARRHOEA [None]
  - CEREBRAL HAEMATOMA [None]
  - HEMIANOPIA [None]
  - HAEMORRHAGE INTRACRANIAL [None]
  - HYPERGLYCAEMIA [None]
  - VITAMIN B12 DEFICIENCY [None]
  - DEPRESSED LEVEL OF CONSCIOUSNESS [None]
  - MUSCULOSKELETAL PAIN [None]
  - ALTERED VISUAL DEPTH PERCEPTION [None]
  - CEREBROVASCULAR ACCIDENT [None]
  - ANXIETY [None]
  - METRORRHAGIA [None]
  - CAROTID ARTERY ANEURYSM [None]
  - DYSKINESIA [None]
  - JUDGEMENT IMPAIRED [None]
  - VAGINAL HAEMORRHAGE [None]
  - STRESS AT WORK [None]
  - OSTEOPOROSIS [None]
  - MENTAL DISORDER [None]
  - EMOTIONAL DISORDER [None]
  - COGNITIVE DISORDER [None]
  - HAIR GROWTH ABNORMAL [None]
  - COITAL BLEEDING [None]
  - MALABSORPTION [None]
  - PERIODIC LIMB MOVEMENT DISORDER [None]
  - DEPRESSION [None]
  - HYPERHIDROSIS [None]
  - SWELLING [None]
  - FATIGUE [None]
  - SLEEP APNOEA SYNDROME [None]
  - SUTURE RELATED COMPLICATION [None]
  - SCAR [None]
  - GASTROOESOPHAGEAL REFLUX DISEASE [None]
  - LOSS OF EMPLOYMENT [None]
  - VOMITING [None]
  - PRURITUS [None]
  - SLEEP DISORDER [None]
